FAERS Safety Report 8367854-8 (Version None)
Quarter: 2012Q2

REPORT INFORMATION
  Report Type: 
  Country: None (occurrence: None)
  Receive Date: 20120517
  Receipt Date: 20120514
  Transmission Date: 20120825
  Serious: Yes (Death, Hospitalization)
  Sender: FDA-Public Use
  Company Number: US-CELGENEUS-163-21880-12051653

PATIENT
  Sex: Male

DRUGS (1)
  1. REVLIMID [Suspect]
     Dosage: 10 MILLIGRAM
     Route: 048
     Dates: start: 20120401

REACTIONS (3)
  - PNEUMONIA [None]
  - ACUTE RESPIRATORY DISTRESS SYNDROME [None]
  - SEPSIS [None]
